FAERS Safety Report 10488090 (Version 2)
Quarter: 2014Q4

REPORT INFORMATION
  Report Type: Spontaneous
  Country: US (occurrence: US)
  Receive Date: 20141001
  Receipt Date: 20141007
  Transmission Date: 20150528
  Serious: Yes (Hospitalization, Other)
  Sender: FDA-Public Use
  Company Number: US-AMGEN-USASP2014073961

PATIENT
  Age: 67 Year
  Sex: Female

DRUGS (1)
  1. ENBREL [Suspect]
     Active Substance: ETANERCEPT
     Indication: RHEUMATOID ARTHRITIS
     Dosage: 50 MG, QWK
     Route: 065
     Dates: start: 1998

REACTIONS (13)
  - Wound dehiscence [Recovered/Resolved]
  - Pain [Recovered/Resolved]
  - Knee operation [Recovered/Resolved]
  - Inflammation [Recovered/Resolved]
  - Limb deformity [Recovered/Resolved]
  - Back pain [Recovered/Resolved]
  - Fall [Recovered/Resolved]
  - Muscular weakness [Recovered/Resolved]
  - Neck pain [Recovered/Resolved]
  - Musculoskeletal disorder [Recovered/Resolved]
  - Postoperative wound infection [Recovered/Resolved]
  - Joint range of motion decreased [Not Recovered/Not Resolved]
  - Pain in extremity [Recovered/Resolved]

NARRATIVE: CASE EVENT DATE: 2004
